FAERS Safety Report 8506008-9 (Version None)
Quarter: 2012Q3

REPORT INFORMATION
  Report Type: 
  Country: None (occurrence: None)
  Receive Date: 20120712
  Receipt Date: 20120703
  Transmission Date: 20120928
  Serious: Yes (Other)
  Sender: FDA-Public Use
  Company Number: DE-GLAXOSMITHKLINE-D0076209A

PATIENT
  Sex: Male
  Weight: 80 kg

DRUGS (5)
  1. NORTRIPTYLINE HCL [Suspect]
     Dosage: 25MG UNKNOWN
     Route: 048
  2. LITHIUM CARBONATE [Suspect]
     Dosage: 450MG UNKNOWN
     Route: 048
  3. SEROQUEL [Suspect]
     Dosage: 2250MG PER DAY
     Route: 048
  4. PROPRANOLOL [Suspect]
     Route: 048
  5. MARCUMAR [Suspect]
     Dosage: 3MG UNKNOWN
     Route: 048

REACTIONS (5)
  - SLOW RESPONSE TO STIMULI [None]
  - TOXICITY TO VARIOUS AGENTS [None]
  - MIOSIS [None]
  - HYPERTENSION [None]
  - BRADYCARDIA [None]
